FAERS Safety Report 11337931 (Version 1)
Quarter: 2015Q3

REPORT INFORMATION
  Report Type: Spontaneous
  Country: US (occurrence: US)
  Receive Date: 20150803
  Receipt Date: 20150803
  Transmission Date: 20151125
  Serious: Yes (Other)
  Sender: FDA-Public Use
  Company Number: US-ELI_LILLY_AND_COMPANY-US200810005326

PATIENT
  Age: 36 Year
  Sex: Male
  Weight: 108.84 kg

DRUGS (2)
  1. ZYPREXA ZYDIS [Suspect]
     Active Substance: OLANZAPINE
     Indication: SCHIZOPHRENIA, PARANOID TYPE
     Dosage: 20 MG, DAILY (1/D)
     Dates: start: 2001
  2. ZYPREXA [Suspect]
     Active Substance: OLANZAPINE
     Dosage: 1 D/F, UNK

REACTIONS (4)
  - Dyskinesia [Unknown]
  - Weight increased [Not Recovered/Not Resolved]
  - Paraesthesia [Unknown]
  - Muscle twitching [Unknown]

NARRATIVE: CASE EVENT DATE: 2001
